FAERS Safety Report 7732624-8 (Version None)
Quarter: 2011Q3

REPORT INFORMATION
  Report Type: 
  Country: None (occurrence: None)
  Receive Date: 20110906
  Receipt Date: 20110826
  Transmission Date: 20111222
  Serious: Yes (Hospitalization)
  Sender: FDA-Public Use
  Company Number: US-BAYER-2011-013151

PATIENT
  Age: 20 Year
  Sex: Female
  Weight: 81.633 kg

DRUGS (7)
  1. YAZ [Suspect]
     Indication: PREMENSTRUAL SYNDROME
     Dosage: UNK
     Route: 048
     Dates: start: 20070101
  2. LITHIUM CARBONATE [Concomitant]
     Indication: BIPOLAR DISORDER
  3. TOPIRAMATE [Concomitant]
     Indication: BIPOLAR DISORDER
  4. SEROQUEL [Concomitant]
     Indication: BIPOLAR DISORDER
  5. DILAUDID [Concomitant]
     Indication: PANCREATIC DISORDER
  6. ELIXA [Concomitant]
     Indication: DEPRESSION
  7. XANAX [Concomitant]
     Indication: BIPOLAR DISORDER

REACTIONS (9)
  - CHOLECYSTITIS CHRONIC [None]
  - APHAGIA [None]
  - PAIN [None]
  - EMOTIONAL DISTRESS [None]
  - ASTHENIA [None]
  - ABDOMINAL PAIN [None]
  - DIZZINESS [None]
  - GALLBLADDER DISORDER [None]
  - FATIGUE [None]
